FAERS Safety Report 5723975-7 (Version None)
Quarter: 2008Q2

REPORT INFORMATION
  Report Type: 
  Country: None (occurrence: None)
  Receive Date: 20080428
  Receipt Date: 20080418
  Transmission Date: 20081010
  Serious: Yes (Other)
  Sender: FDA-Public Use
  Company Number: 2008009885

PATIENT
  Sex: Female

DRUGS (3)
  1. BENADRYL [Suspect]
     Indication: SINUS DISORDER
     Dosage: 1 STRIP ONCE, ORAL
     Route: 048
     Dates: start: 20080417, end: 20080417
  2. IRON PILLS (IRON) [Concomitant]
  3. CONTRACEPTIVE, UNSPECIFIED (CONTRACEPTIVE, UNSPECIFIED) [Concomitant]

REACTIONS (2)
  - HYPOAESTHESIA ORAL [None]
  - THROAT TIGHTNESS [None]
